FAERS Safety Report 5098384-7 (Version None)
Quarter: 2006Q3

REPORT INFORMATION
  Report Type: 
  Country: None (occurrence: None)
  Receive Date: 20060906
  Receipt Date: 20051108
  Transmission Date: 20061208
  Serious: No
  Sender: FDA-Public Use
  Company Number: US-GLAXOSMITHKLINE-A0582784A

PATIENT
  Sex: Female

DRUGS (1)
  1. REQUIP [Suspect]
     Indication: PERIODIC LIMB MOVEMENT DISORDER
     Dosage: .5MG PER DAY
     Route: 048

REACTIONS (1)
  - CONDITION AGGRAVATED [None]
